FAERS Safety Report 9861887 (Version 2)
Quarter: 2014Q1

REPORT INFORMATION
  Report Type: Spontaneous
  Country: US (occurrence: US)
  Receive Date: 20140203
  Receipt Date: 20140217
  Transmission Date: 20141002
  Serious: Yes (Hospitalization)
  Sender: FDA-Public Use
  Company Number: US-BEH-2014040379

PATIENT
  Age: 15 Year
  Sex: Male
  Weight: 76 kg

DRUGS (6)
  1. HIZENTRA [Suspect]
     Indication: IMMUNODEFICIENCY COMMON VARIABLE
     Dosage: 10 GM 50 ML VIAL
     Route: 058
  2. ACETAMINOPHEN [Concomitant]
  3. DIPHENHYDRAMINE [Concomitant]
  4. LIDOCAINE [Concomitant]
  5. EPIPEN [Concomitant]
  6. CHILDREN^S CHEWABLE VITAMIN [Concomitant]

REACTIONS (4)
  - Brain neoplasm [Unknown]
  - Cancer in remission [Unknown]
  - Migraine [Unknown]
  - Vomiting [Unknown]
